FAERS Safety Report 8463928-1 (Version None)
Quarter: 2012Q2

REPORT INFORMATION
  Report Type: 
  Country: None (occurrence: None)
  Receive Date: 20120625
  Receipt Date: 20120612
  Transmission Date: 20120825
  Serious: Yes (Other)
  Sender: FDA-Public Use
  Company Number: FI-ELI_LILLY_AND_COMPANY-FI201206003449

PATIENT
  Sex: Female

DRUGS (5)
  1. QUETIAPINE [Concomitant]
     Indication: INSOMNIA
     Dosage: 25 MG, OTHER
  2. GASTREX                            /01312202/ [Concomitant]
     Dosage: 30 MG, OTHER
     Route: 048
     Dates: start: 20120315
  3. TAMOFEN [Concomitant]
     Indication: BREAST CANCER
     Dosage: 20 MG, QD
     Route: 048
  4. CYMBALTA [Suspect]
     Indication: DEPRESSION
     Dosage: 30 MG, QD
     Route: 048
     Dates: start: 20120322
  5. PANACOD [Concomitant]
     Indication: PAIN
     Dosage: 1 DF, UNKNOWN

REACTIONS (2)
  - MIGRAINE [None]
  - URINARY TRACT INFECTION [None]
